FAERS Safety Report 20844828 (Version 1)
Quarter: 2022Q2

REPORT INFORMATION
  Report Type: Spontaneous
  Country: CN (occurrence: CN)
  Receive Date: 20220518
  Receipt Date: 20220518
  Transmission Date: 20220721
  Serious: Yes (Other)
  Sender: FDA-Public Use
  Company Number: CN-ELI_LILLY_AND_COMPANY-CN202205003135

PATIENT
  Age: 72 Year
  Sex: Male
  Weight: 53 kg

DRUGS (18)
  1. PEMETREXED [Suspect]
     Active Substance: PEMETREXED
     Indication: Lung adenocarcinoma
     Dosage: 400 MG, SINGLE
     Route: 041
     Dates: start: 20210824, end: 20210824
  2. PEMETREXED [Suspect]
     Active Substance: PEMETREXED
     Dosage: 400 MG, SINGLE
     Route: 041
     Dates: start: 20210901, end: 20210901
  3. PEMETREXED [Suspect]
     Active Substance: PEMETREXED
     Dosage: 400 MG, SINGLE
     Route: 041
     Dates: start: 20211008, end: 20211008
  4. PEMETREXED [Suspect]
     Active Substance: PEMETREXED
     Dosage: 400 MG, SINGLE
     Route: 041
     Dates: start: 20211109, end: 20211109
  5. PEMETREXED [Suspect]
     Active Substance: PEMETREXED
     Dosage: 400 MG, SINGLE
     Route: 041
     Dates: start: 20211203, end: 20211203
  6. PEMETREXED [Suspect]
     Active Substance: PEMETREXED
     Dosage: 400 MG, SINGLE
     Route: 041
     Dates: start: 20211230, end: 20211230
  7. PEMETREXED [Suspect]
     Active Substance: PEMETREXED
     Dosage: 400 MG, SINGLE
     Route: 041
     Dates: start: 20220222, end: 20220222
  8. SINTILIMAB [Suspect]
     Active Substance: SINTILIMAB
     Indication: Lung adenocarcinoma
     Dosage: 200 MG, SINGLE
     Route: 041
     Dates: start: 20210824, end: 20210824
  9. SINTILIMAB [Suspect]
     Active Substance: SINTILIMAB
     Dosage: 200 MG, SINGLE
     Route: 041
     Dates: start: 20210901, end: 20210901
  10. SINTILIMAB [Suspect]
     Active Substance: SINTILIMAB
     Dosage: 200 MG, SINGLE
     Route: 041
     Dates: start: 20211008, end: 20211008
  11. SINTILIMAB [Suspect]
     Active Substance: SINTILIMAB
     Dosage: 200 MG, SINGLE
     Route: 041
     Dates: start: 20211109, end: 20211109
  12. SINTILIMAB [Suspect]
     Active Substance: SINTILIMAB
     Dosage: 200 MG, SINGLE
     Route: 041
     Dates: start: 20211203, end: 20211203
  13. SINTILIMAB [Suspect]
     Active Substance: SINTILIMAB
     Dosage: 200 MG, SINGLE
     Route: 041
     Dates: start: 20211230, end: 20211230
  14. SINTILIMAB [Suspect]
     Active Substance: SINTILIMAB
     Dosage: 200 MG, SINGLE
     Route: 041
     Dates: start: 20220110, end: 20220110
  15. SINTILIMAB [Suspect]
     Active Substance: SINTILIMAB
     Dosage: 200 MG, SINGLE
     Route: 041
     Dates: start: 20220222, end: 20220222
  16. SINTILIMAB [Suspect]
     Active Substance: SINTILIMAB
     Dosage: 200 MG, SINGLE
     Route: 041
     Dates: start: 20220316, end: 20220316
  17. SODIUM CHLORIDE [Concomitant]
     Active Substance: SODIUM CHLORIDE
     Indication: Medication dilution
     Dosage: 100 ML, SINGLE
     Route: 041
     Dates: start: 20210824, end: 20220222
  18. SODIUM CHLORIDE [Concomitant]
     Active Substance: SODIUM CHLORIDE
     Dosage: 100 ML, SINGLE
     Route: 041
     Dates: start: 20210824, end: 20220222

REACTIONS (1)
  - Pruritus allergic [Unknown]

NARRATIVE: CASE EVENT DATE: 20220410
